FAERS Safety Report 25385467 (Version 1)
Quarter: 2025Q2

REPORT INFORMATION
  Report Type: Spontaneous
  Country: FR (occurrence: FR)
  Receive Date: 20250602
  Receipt Date: 20250602
  Transmission Date: 20250717
  Serious: Yes (Death, Life-Threatening)
  Sender: ORGANON
  Company Number: None

PATIENT
  Age: 20 Year
  Sex: Female

DRUGS (1)
  1. BETAMETHASONE [Suspect]
     Active Substance: BETAMETHASONE
     Indication: Maternal therapy to enhance foetal lung maturity
     Dosage: ONE VIAL PER DAY
     Route: 030
     Dates: start: 20240927, end: 20240928

REACTIONS (1)
  - Sickle cell anaemia with crisis [Fatal]

NARRATIVE: CASE EVENT DATE: 20240930
